FAERS Safety Report 16197572 (Version 1)
Quarter: 2019Q2

REPORT INFORMATION
  Report Type: Spontaneous
  Country: US (occurrence: US)
  Receive Date: 20190413
  Receipt Date: 20190413
  Transmission Date: 20190711
  Serious: Yes (Other)
  Sender: FDA-Public Use
  Company Number: None

PATIENT
  Age: 2 Year
  Sex: Female
  Weight: 13.05 kg

DRUGS (1)
  1. MIRALAX [Suspect]
     Active Substance: POLYETHYLENE GLYCOL 3350
     Indication: CONSTIPATION
     Dosage: ?          QUANTITY:1 TEASPOON(S);?
     Route: 048

REACTIONS (10)
  - Disorientation [None]
  - Aggression [None]
  - Emotional disorder [None]
  - Tic [None]
  - Psychomotor hyperactivity [None]
  - Sleep terror [None]
  - Anxiety [None]
  - Screaming [None]
  - Fear [None]
  - Thinking abnormal [None]

NARRATIVE: CASE EVENT DATE: 20190410
